FAERS Safety Report 21919972 (Version 1)
Quarter: 2023Q1

REPORT INFORMATION
  Report Type: Spontaneous
  Country: DE (occurrence: DE)
  Receive Date: 20230127
  Receipt Date: 20230127
  Transmission Date: 20230417
  Serious: Yes (Other)
  Sender: FDA-Public Use
  Company Number: DE-EMBRYOTOX-202105183

PATIENT
  Age: 1 Day
  Sex: Male
  Weight: 2.85 kg

DRUGS (2)
  1. ABILIFY [Suspect]
     Active Substance: ARIPIPRAZOLE
     Indication: Schizophrenia
     Dosage: 10 MG, QD (10 [MG/D ]/ AT LEAST UNTIL GW 7+3, STOP DATE UNKNOWN, RESTART FROM GW 29+6 ONWARDS)
     Route: 065
     Dates: start: 20210312, end: 20211225
  2. FOLIC ACID [Concomitant]
     Active Substance: FOLIC ACID
     Indication: Prophylaxis of neural tube defect
     Dosage: 0.8 MG, QD
     Route: 065

REACTIONS (2)
  - Small for dates baby [Recovered/Resolved]
  - Foetal exposure during pregnancy [Unknown]

NARRATIVE: CASE EVENT DATE: 20211201
